FAERS Safety Report 25286908 (Version 1)
Quarter: 2025Q2

REPORT INFORMATION
  Report Type: Spontaneous
  Country: CN (occurrence: CN)
  Receive Date: 20250509
  Receipt Date: 20250509
  Transmission Date: 20250716
  Serious: Yes (Life-Threatening, Other)
  Sender: JIANGSU HANSOH PHARMACEUTICAL
  Company Number: CN-Jiangsu Hansoh Pharmaceutical Co., Ltd-2176423

PATIENT
  Age: 59 Year
  Sex: Male
  Weight: 53 kg

DRUGS (3)
  1. GEMCITABINE HYDROCHLORIDE [Suspect]
     Active Substance: GEMCITABINE HYDROCHLORIDE
     Indication: Pancreatic carcinoma
     Dates: start: 20250412, end: 20250419
  2. PACLITAXEL [Suspect]
     Active Substance: PACLITAXEL
     Dates: start: 20250412, end: 20250419
  3. LEUCOGEN [Concomitant]
     Active Substance: LEUCOGEN
     Dates: start: 20250412, end: 20250430

REACTIONS (2)
  - Myelosuppression [Recovering/Resolving]
  - Diarrhoea [Recovered/Resolved]

NARRATIVE: CASE EVENT DATE: 20250417
